FAERS Safety Report 21171286 (Version 2)
Quarter: 2022Q4

REPORT INFORMATION
  Report Type: Report from Study
  Country: US (occurrence: US)
  Receive Date: 20220804
  Receipt Date: 20221029
  Transmission Date: 20230113
  Serious: Yes (Hospitalization)
  Sender: FDA-Public Use
  Company Number: US-ABBVIE-22K-163-4467499-00

PATIENT
  Age: 77 Year
  Sex: Female

DRUGS (1)
  1. HUMIRA [Suspect]
     Active Substance: ADALIMUMAB
     Indication: Psoriasis
     Dosage: CITRATE FREE , FORM STRENGTH: 40 MG
     Route: 058

REACTIONS (4)
  - Cervical vertebral fracture [Recovering/Resolving]
  - Fall [Recovering/Resolving]
  - Rotator cuff syndrome [Unknown]
  - Injury [Recovering/Resolving]

NARRATIVE: CASE EVENT DATE: 20220701
